FAERS Safety Report 25333858 (Version 1)
Quarter: 2025Q2

REPORT INFORMATION
  Report Type: Spontaneous
  Country: US (occurrence: US)
  Receive Date: 20250520
  Receipt Date: 20250520
  Transmission Date: 20250716
  Serious: No
  Sender: HIKMA
  Company Number: US-HIKMA PHARMACEUTICALS USA INC.-US-H14001-24-10691

PATIENT
  Age: 78 Year
  Sex: Male

DRUGS (2)
  1. TESTOSTERONE CYPIONATE [Suspect]
     Active Substance: TESTOSTERONE CYPIONATE
     Dosage: 100 MILLILITER, QOW
     Route: 030
     Dates: start: 2024
  2. TESTOSTERONE CYPIONATE [Suspect]
     Active Substance: TESTOSTERONE CYPIONATE
     Indication: Blood testosterone decreased
     Dosage: 200 MILLIGRAM, QOW
     Route: 030

REACTIONS (3)
  - Blood testosterone increased [Recovered/Resolved]
  - Accidental overdose [Recovered/Resolved]
  - Product label confusion [Recovered/Resolved]
